FAERS Safety Report 14911782 (Version 1)
Quarter: 2018Q2

REPORT INFORMATION
  Report Type: Spontaneous
  Country: FR (occurrence: FR)
  Receive Date: 20180518
  Receipt Date: 20180518
  Transmission Date: 20180711
  Serious: Yes (Other)
  Sender: FDA-Public Use
  Company Number: FR-ASTRAZENECA-2018SE62821

PATIENT
  Sex: Male
  Weight: .8 kg

DRUGS (9)
  1. VITAMINE B12 [Suspect]
     Active Substance: CYANOCOBALAMIN
     Indication: VITAMIN SUPPLEMENTATION
     Dosage: 1.0DF UNKNOWN
     Route: 064
  2. SODIUM BICARBONATE. [Suspect]
     Active Substance: SODIUM BICARBONATE
     Indication: MINERAL SUPPLEMENTATION
     Route: 064
  3. IMUREL [Suspect]
     Active Substance: AZATHIOPRINE SODIUM
     Indication: RENAL TRANSPLANT
     Dosage: 100.0MG UNKNOWN
     Route: 064
  4. KARDEGIC [Suspect]
     Active Substance: ASPIRIN DL-LYSINE
     Indication: PROPHYLAXIS
     Route: 064
     Dates: start: 20171122
  5. SOLUPRED (PREDNISOLONE SODIUM SULFOBENZOATE) [Suspect]
     Active Substance: PREDNISOLONE SODIUM METAZOATE
     Indication: RENAL TRANSPLANT
     Dosage: 10.0MG UNKNOWN
     Route: 064
  6. FUMAFER [Suspect]
     Active Substance: FERROUS FUMARATE
     Indication: MINERAL SUPPLEMENTATION
     Dosage: 1.0DF UNKNOWN
     Route: 064
  7. PROGRAF [Suspect]
     Active Substance: TACROLIMUS\TACROLIMUS ANHYDROUS
     Indication: RENAL TRANSPLANT
     Dosage: 3.0MG UNKNOWN
     Route: 064
  8. OMEPRAZOLE. [Suspect]
     Active Substance: OMEPRAZOLE
     Route: 064
  9. TRANDATE [Suspect]
     Active Substance: LABETALOL HYDROCHLORIDE
     Indication: HYPERTENSION
     Dosage: 200.0MG UNKNOWN
     Route: 064

REACTIONS (3)
  - Congenital oesophageal anomaly [Not Recovered/Not Resolved]
  - Polyhydramnios [Not Recovered/Not Resolved]
  - Maternal drugs affecting foetus [None]

NARRATIVE: CASE EVENT DATE: 20180411
